FAERS Safety Report 7317588 (Version 5)
Quarter: 2014Q1

REPORT INFORMATION
  Report Type: Spontaneous
  Country: US (occurrence: US)
  Receive Date: 20100312
  Receipt Date: 20140210
  Transmission Date: 20141002
  Serious: Yes (Hospitalization, Other)
  Sender: FDA-Public Use
  Company Number: US-BAYER-201016057NA

PATIENT
  Age: 35 Year
  Sex: Female
  Weight: 107.94 kg

DRUGS (7)
  1. YAZ [Suspect]
     Indication: PRODUCT USED FOR UNKNOWN INDICATION
     Route: 048
  2. YASMIN [Suspect]
     Indication: PRODUCT USED FOR UNKNOWN INDICATION
     Route: 048
  3. FUROSEMIDE [Concomitant]
  4. ATACAND [CANDESARTAN CILEXETIL] [Concomitant]
  5. ATENOLOL [Concomitant]
  6. NORVASC [Concomitant]
  7. ZEMPLAR [Concomitant]

REACTIONS (7)
  - Deep vein thrombosis [Unknown]
  - Cholecystitis acute [None]
  - Gallbladder injury [None]
  - Hypertension [Unknown]
  - Injury [None]
  - Pain [None]
  - Pain [None]
